FAERS Safety Report 12312487 (Version 2)
Quarter: 2016Q2

REPORT INFORMATION
  Report Type: Spontaneous
  Country: US (occurrence: US)
  Receive Date: 20160428
  Receipt Date: 20160502
  Transmission Date: 20160815
  Serious: No
  Sender: FDA-Public Use
  Company Number: US-HORIZON-PEN-0192-2016

PATIENT
  Age: 52 Year
  Sex: Female

DRUGS (12)
  1. TRAZODONE [Concomitant]
     Active Substance: TRAZODONE HYDROCHLORIDE
     Dosage: 100 MG, 1-2 AT HS
  2. SOMA [Concomitant]
     Active Substance: CARISOPRODOL
     Dosage: 300 MG BID
  3. SEROQUEL [Concomitant]
     Active Substance: QUETIAPINE FUMARATE
     Dosage: 200 MG, 1 OR 2 AT BEDTIME
  4. MORPHINE ER [Concomitant]
     Active Substance: MORPHINE
     Dosage: 30 MG BID
  5. ATIVAN [Concomitant]
     Active Substance: LORAZEPAM
     Dosage: 1 MG QID
  6. BABY ASA [Concomitant]
     Active Substance: ASPIRIN
     Dosage: 81 MG DAILY
  7. MORPHINE [Concomitant]
     Active Substance: MORPHINE
     Dosage: 15 MG BID
  8. PENNSAID [Suspect]
     Active Substance: DICLOFENAC SODIUM
     Indication: MUSCULOSKELETAL PAIN
     Dosage: BID
     Dates: start: 2016
  9. MORPHINE ER [Concomitant]
     Active Substance: MORPHINE
     Dosage: 15 MG TID
  10. VIIBRYD [Concomitant]
     Active Substance: VILAZODONE HYDROCHLORIDE
     Dosage: 40 MG QD
  11. LOPID [Concomitant]
     Active Substance: GEMFIBROZIL
     Dosage: 600 MG BID
  12. SYNTHROID [Concomitant]
     Active Substance: LEVOTHYROXINE SODIUM
     Dosage: 88 ?G DAILY

REACTIONS (1)
  - Off label use [Unknown]

NARRATIVE: CASE EVENT DATE: 2016
